FAERS Safety Report 5604021-2 (Version None)
Quarter: 2008Q1

REPORT INFORMATION
  Report Type: 
  Country: None (occurrence: None)
  Receive Date: 20080128
  Receipt Date: 20080118
  Transmission Date: 20080703
  Serious: Yes (Other)
  Sender: FDA-Public Use
  Company Number: PHBS2008IT01061

PATIENT
  Sex: Female

DRUGS (1)
  1. ZOMETA [Suspect]
     Dosage: 34 CYCLES
     Route: 065

REACTIONS (3)
  - BONE LESION [None]
  - MASTICATION DISORDER [None]
  - OSTEONECROSIS [None]
